FAERS Safety Report 13818869 (Version 1)
Quarter: 2017Q3

REPORT INFORMATION
  Report Type: Spontaneous
  Country: JP (occurrence: JP)
  Receive Date: 20170801
  Receipt Date: 20170801
  Transmission Date: 20171127
  Serious: Yes (Hospitalization, Other)
  Sender: FDA-Public Use
  Company Number: JP-SUCAMPO PHARMACEUTICALS INC.-SPI201700936

PATIENT
  Age: 85 Year
  Sex: Female
  Weight: 44 kg

DRUGS (13)
  1. COVERSYL [Concomitant]
     Active Substance: PERINDOPRIL
     Route: 048
  2. ARGAMATE [Concomitant]
     Active Substance: CALCIUM POLYSTYRENE SULFONATE
     Route: 048
  3. AMITIZA [Suspect]
     Active Substance: LUBIPROSTONE
     Indication: CONSTIPATION
     Dosage: 24 MCG, BID
     Route: 048
     Dates: start: 20170515, end: 20170529
  4. LIVALO [Concomitant]
     Active Substance: PITAVASTATIN CALCIUM
     Route: 048
  5. WARFARIN [Concomitant]
     Active Substance: WARFARIN
     Route: 048
  6. FEBURIC [Concomitant]
     Active Substance: FEBUXOSTAT
     Route: 048
  7. CONSTAN [Concomitant]
     Active Substance: ALPRAZOLAM
     Route: 048
  8. NEXIUM [Concomitant]
     Active Substance: ESOMEPRAZOLE MAGNESIUM
     Route: 048
  9. UNKNOWN [Concomitant]
     Active Substance: UNSPECIFIED INGREDIENT
     Route: 048
  10. UNKNOWN [Concomitant]
     Active Substance: UNSPECIFIED INGREDIENT
     Route: 048
  11. SERMION [Concomitant]
     Active Substance: NICERGOLINE
     Route: 048
  12. SPIRONOLACTONE. [Suspect]
     Active Substance: SPIRONOLACTONE
     Route: 048
  13. FUROSEMIDE. [Suspect]
     Active Substance: FUROSEMIDE
     Route: 048

REACTIONS (6)
  - Vomiting [Unknown]
  - Hyponatraemia [Recovered/Resolved]
  - Renal impairment [Unknown]
  - Diarrhoea [Recovered/Resolved]
  - Dehydration [Recovered/Resolved]
  - Decreased appetite [Unknown]

NARRATIVE: CASE EVENT DATE: 201705
